FAERS Safety Report 4687116-X (Version None)
Quarter: 2005Q2

REPORT INFORMATION
  Report Type: 
  Country: None (occurrence: None)
  Receive Date: 20050607
  Receipt Date: 20050523
  Transmission Date: 20051028
  Serious: Yes (Life-Threatening, Hospitalization)
  Sender: FDA-Public Use
  Company Number: USA040874589

PATIENT
  Age: 78 Year
  Sex: Female

DRUGS (16)
  1. FORTEO [Suspect]
     Indication: OSTEOPOROSIS
     Dosage: 20 UG DAY
     Dates: start: 20040501
  2. DURAGESIC (FENTANYL) [Concomitant]
  3. LIPITOR [Concomitant]
  4. LORAZEPAM [Concomitant]
  5. ACIPHEX [Concomitant]
  6. TRAMADOL HCL [Concomitant]
  7. METOPROLOL [Concomitant]
  8. ASPIRIN [Concomitant]
  9. CENTRUM [Concomitant]
  10. VITAMIN E [Concomitant]
  11. CALTRATE + D [Concomitant]
  12. ASCORBIC ACID [Concomitant]
  13. METOPROLOL [Concomitant]
  14. CALCITONIN [Concomitant]
  15. ASPIRIN [Concomitant]
  16. PROPOXYPHENE NAPSYLATE W/ ACETAMINOPHEN [Concomitant]

REACTIONS (9)
  - ARTHRALGIA [None]
  - BACK PAIN [None]
  - BREAST PAIN [None]
  - CARDIO-RESPIRATORY ARREST [None]
  - CERVICAL VERTEBRAL FRACTURE [None]
  - HIATUS HERNIA [None]
  - INJECTION SITE HAEMORRHAGE [None]
  - INJECTION SITE PAIN [None]
  - PAIN IN EXTREMITY [None]
